FAERS Safety Report 10215205 (Version 4)
Quarter: 2014Q4

REPORT INFORMATION
  Report Type: Spontaneous
  Country: JP (occurrence: JP)
  Receive Date: 20140603
  Receipt Date: 20141013
  Transmission Date: 20150528
  Serious: Yes (Other)
  Sender: FDA-Public Use
  Company Number: PHHY2014JP048686

PATIENT
  Age: 71 Year
  Sex: Female
  Weight: 68 kg

DRUGS (2)
  1. AFINITOR [Suspect]
     Active Substance: EVEROLIMUS
     Indication: OFF LABEL USE
  2. AFINITOR [Suspect]
     Active Substance: EVEROLIMUS
     Indication: RECTAL CANCER
     Dosage: 10 MG, DAILY
     Route: 048
     Dates: start: 20140411, end: 20140514

REACTIONS (6)
  - Tumour lysis syndrome [Recovered/Resolved]
  - Cough [Unknown]
  - Blood creatinine increased [Unknown]
  - Interstitial lung disease [Recovered/Resolved]
  - Blood potassium increased [Unknown]
  - Dyspnoea [Unknown]

NARRATIVE: CASE EVENT DATE: 20140418
